FAERS Safety Report 6811501-0 (Version None)
Quarter: 2010Q2

REPORT INFORMATION
  Report Type: 
  Country: None (occurrence: None)
  Receive Date: 20100625
  Receipt Date: 20100610
  Transmission Date: 20101027
  Serious: Yes (Hospitalization)
  Sender: FDA-Public Use
  Company Number: 1000014563

PATIENT
  Age: 88 Year
  Sex: Male

DRUGS (4)
  1. MEMANTINE HCL [Suspect]
     Dosage: 10 MG (10 MG, 1 IN 1 D), ORAL
     Route: 048
     Dates: start: 20090101, end: 20100401
  2. HEPT A MYL (SOLUTION) [Concomitant]
  3. TAHOR (TABLETS) [Concomitant]
  4. CITALOPRAM [Concomitant]

REACTIONS (3)
  - BRADYCARDIA [None]
  - MALAISE [None]
  - VENTRICULAR EXTRASYSTOLES [None]
